FAERS Safety Report 9972861 (Version 1)
Quarter: 2014Q1

REPORT INFORMATION
  Report Type: Report from Study
  Country: LB (occurrence: LB)
  Receive Date: 20140306
  Receipt Date: 20140306
  Transmission Date: 20141002
  Serious: Yes (Death, Hospitalization)
  Sender: FDA-Public Use
  Company Number: PHHY2013LB155643

PATIENT
  Age: 70 Year
  Sex: Female

DRUGS (5)
  1. ACLASTA [Suspect]
     Indication: OSTEOPOROSIS
     Dosage: 5 MG, UNK
     Route: 042
  2. BI TILDIEM [Concomitant]
     Dosage: 90 MG, BID
     Route: 048
  3. ASPIRIN [Concomitant]
     Dosage: QD ONCE
     Route: 048
  4. PREDNISON [Concomitant]
     Dosage: 1 DF, QD
     Route: 048
  5. ALDACTONE [Concomitant]
     Dosage: 1 DF, QD
     Route: 048

REACTIONS (4)
  - Death [Fatal]
  - Cardiac arrest [Unknown]
  - Circulatory collapse [Unknown]
  - Loss of consciousness [Unknown]
